FAERS Safety Report 7335338-1 (Version None)
Quarter: 2011Q1

REPORT INFORMATION
  Report Type: 
  Country: None (occurrence: None)
  Receive Date: 20110307
  Receipt Date: 20110224
  Transmission Date: 20110831
  Serious: Yes (Hospitalization)
  Sender: FDA-Public Use
  Company Number: JP-AMGEN-JPNCT2011012545

PATIENT
  Age: 69 Year
  Sex: Female
  Weight: 50 kg

DRUGS (12)
  1. ALOXI [Concomitant]
     Dosage: UNK
     Route: 042
  2. AZUNOL [Concomitant]
     Dosage: UNK
     Route: 049
  3. DEXALTIN [Concomitant]
     Dosage: UNK
     Route: 062
  4. HIRUDOID SOFT [Concomitant]
     Dosage: UNK
     Route: 062
  5. MYSER [Concomitant]
     Dosage: UNK
     Route: 062
  6. PANITUMUMAB [Suspect]
     Indication: COLORECTAL CANCER
     Dosage: 6 MG/KG, Q2WK
     Route: 041
     Dates: start: 20100826
  7. IRINOTECAN HYDROCHLORIDE [Suspect]
     Indication: COLORECTAL CANCER
     Route: 041
     Dates: start: 20100826, end: 20100826
  8. EMEND [Concomitant]
     Dosage: UNK
     Route: 048
  9. LOCOID [Concomitant]
     Dosage: UNK
     Route: 062
  10. CORTICOSTEROIDS [Concomitant]
     Indication: PROPHYLAXIS
     Dosage: UNK
     Route: 065
  11. DECADRON [Concomitant]
     Dosage: UNK
     Route: 042
  12. RINDERON-V [Concomitant]
     Dosage: UNK
     Route: 062

REACTIONS (3)
  - DERMATITIS ACNEIFORM [None]
  - CEREBROVASCULAR DISORDER [None]
  - NAUSEA [None]
